FAERS Safety Report 16187630 (Version 2)
Quarter: 2019Q2

REPORT INFORMATION
  Report Type: Spontaneous
  Country: None (occurrence: US)
  Receive Date: 20190412
  Receipt Date: 20190426
  Transmission Date: 20190711
  Serious: No
  Sender: FDA-Public Use
  Company Number: US-GLAXOSMITHKLINE-US2019064990

PATIENT
  Age: 70 Year
  Sex: Female

DRUGS (2)
  1. ABREVA [Suspect]
     Active Substance: DOCOSANOL
     Indication: APHTHOUS ULCER
     Dosage: UNK
     Dates: start: 201903, end: 20190404
  2. ABREVA [Suspect]
     Active Substance: DOCOSANOL
     Dosage: UNK
     Dates: start: 201903, end: 20190404

REACTIONS (3)
  - Product use in unapproved indication [Unknown]
  - Drug ineffective for unapproved indication [Unknown]
  - Pain [Unknown]
